FAERS Safety Report 15791010 (Version 1)
Quarter: 2019Q1

REPORT INFORMATION
  Report Type: Spontaneous
  Country: JP (occurrence: JP)
  Receive Date: 20190104
  Receipt Date: 20190104
  Transmission Date: 20190417
  Serious: Yes (Hospitalization)
  Sender: FDA-Public Use
  Company Number: JP-NAPPMUNDI-GBR-2018-0062899

PATIENT
  Age: 100 Year
  Sex: Female

DRUGS (15)
  1. FEBUXOSTAT. [Concomitant]
     Active Substance: FEBUXOSTAT
     Route: 048
  2. FORTEO [Concomitant]
     Active Substance: TERIPARATIDE
     Route: 058
  3. FUROSEMIDE. [Concomitant]
     Active Substance: FUROSEMIDE
     Route: 048
  4. NEXIUM [Concomitant]
     Active Substance: ESOMEPRAZOLE MAGNESIUM
     Route: 048
  5. NORSPAN [Suspect]
     Active Substance: BUPRENORPHINE
     Indication: BACK PAIN
     Dosage: 5 MCG, Q1H
     Route: 062
  6. NORSPAN [Suspect]
     Active Substance: BUPRENORPHINE
     Dosage: 5 MCG, Q1H
     Route: 062
     Dates: start: 20181117
  7. TRAMACET [Concomitant]
     Active Substance: ACETAMINOPHEN\TRAMADOL
  8. HALFDIGOXIN [Concomitant]
     Active Substance: DIGOXIN
  9. FERROUS SODIUM CITRATE [Concomitant]
     Active Substance: SODIUM FERROUS CITRATE
     Route: 048
  10. NORSPAN [Suspect]
     Active Substance: BUPRENORPHINE
     Dosage: 5 MCG, Q1H
     Route: 062
     Dates: start: 20181013, end: 20181026
  11. LIMAPROST ALFADEX [Concomitant]
     Active Substance: LIMAPROST
  12. NORSPAN [Suspect]
     Active Substance: BUPRENORPHINE
     Dosage: 10 MCG, Q1H
     Route: 062
     Dates: start: 20181027, end: 20181110
  13. NORSPAN [Suspect]
     Active Substance: BUPRENORPHINE
     Dosage: 10 MCG, Q1H
     Route: 062
     Dates: start: 20181208
  14. LOXOPROFEN [Concomitant]
     Active Substance: LOXOPROFEN
     Route: 048
  15. GLUCONSAN K [Concomitant]
     Active Substance: POTASSIUM GLUCONATE
     Route: 048

REACTIONS (2)
  - Hallucination [Recovered/Resolved]
  - Cardiac disorder [Unknown]

NARRATIVE: CASE EVENT DATE: 20181027
